FAERS Safety Report 5140095-3 (Version None)
Quarter: 2006Q4

REPORT INFORMATION
  Report Type: 
  Country: None (occurrence: None)
  Receive Date: 20061024
  Receipt Date: 20061005
  Transmission Date: 20070319
  Serious: Yes (Other)
  Sender: FDA-Public Use
  Company Number: US200609002323

PATIENT
  Age: 51 Year
  Sex: Male
  Weight: 86.2 kg

DRUGS (3)
  1. ZYPREXA [Suspect]
     Dates: start: 20000101
  2. QUETIAPINE FUMARATE [Concomitant]
  3. SERTRALINE [Concomitant]

REACTIONS (4)
  - DIABETES MELLITUS [None]
  - HEPATITIS VIRAL [None]
  - METABOLIC DISORDER [None]
  - WEIGHT DECREASED [None]
